FAERS Safety Report 18037800 (Version 1)
Quarter: 2020Q3

REPORT INFORMATION
  Report Type: Spontaneous
  Country: JP (occurrence: JP)
  Receive Date: 20200717
  Receipt Date: 20200717
  Transmission Date: 20201103
  Serious: Yes (Other)
  Sender: FDA-Public Use
  Company Number: JP-BAYER-2020-136471

PATIENT
  Sex: Female

DRUGS (1)
  1. MIRENA [Suspect]
     Active Substance: LEVONORGESTREL
     Dosage: 20 ?G/D, CONT
     Route: 015
     Dates: start: 2015, end: 202006

REACTIONS (3)
  - Metrorrhagia [None]
  - Menstruation delayed [None]
  - Adenocarcinoma of the cervix [None]
